FAERS Safety Report 16730551 (Version 1)
Quarter: 2019Q3

REPORT INFORMATION
  Report Type: Spontaneous
  Country: US (occurrence: US)
  Receive Date: 20190822
  Receipt Date: 20190822
  Transmission Date: 20191005
  Serious: Yes (Other)
  Sender: FDA-Public Use
  Company Number: US-MELINTA THERAPEUTICS, INC-US-MLNT-19-00141

PATIENT
  Age: 75 Year
  Sex: Male

DRUGS (1)
  1. BAXDELA [Suspect]
     Active Substance: DELAFLOXACIN MEGLUMINE
     Indication: PRODUCT USED FOR UNKNOWN INDICATION
     Dosage: NOT PROVIDED.
     Route: 048
     Dates: start: 20190809

REACTIONS (2)
  - Tendon rupture [Unknown]
  - Nausea [Unknown]

NARRATIVE: CASE EVENT DATE: 20190813
